FAERS Safety Report 8435412-2 (Version None)
Quarter: 2012Q2

REPORT INFORMATION
  Report Type: 
  Country: None (occurrence: None)
  Receive Date: 20120614
  Receipt Date: 20120611
  Transmission Date: 20120825
  Serious: Yes (Other)
  Sender: FDA-Public Use
  Company Number: PHFR2011IE02412

PATIENT
  Sex: Female

DRUGS (10)
  1. PREGABALIN [Concomitant]
     Dosage: 75 MG,
     Route: 048
  2. ATORVASTATIN CALCIUM [Concomitant]
     Indication: BLOOD CHOLESTEROL INCREASED
     Dosage: 40 MG,
     Route: 048
  3. GALFER [Concomitant]
     Indication: ANAEMIA
     Route: 048
  4. GLUCOPHAGE [Concomitant]
     Indication: DIABETES MELLITUS
     Dosage: 1000 MG,
     Route: 048
  5. VESITRIM [Concomitant]
     Dosage: 100 MG
     Route: 048
  6. CLOZARIL [Suspect]
     Indication: SCHIZOPHRENIA
     Dosage: 425 MG
     Route: 048
     Dates: start: 19950708
  7. CLOZARIL [Suspect]
     Route: 048
     Dates: start: 20010701
  8. TELMISARTAN [Concomitant]
     Indication: HYPERTENSION
     Dosage: 20 MG,
     Route: 048
  9. ACETAMINOPHEN [Concomitant]
     Indication: ARTHRITIS
     Dosage: 500 MG,
  10. VENLAFAXINE HCL [Concomitant]
     Indication: DEPRESSION
     Dosage: 150 MG,

REACTIONS (8)
  - HAEMATOCRIT DECREASED [None]
  - OSTEOARTHRITIS [None]
  - HAEMOGLOBIN DECREASED [None]
  - IRON DEFICIENCY ANAEMIA [None]
  - MEAN CELL HAEMOGLOBIN CONCENTRATION DECREASED [None]
  - RENAL IMPAIRMENT [None]
  - MEAN CELL VOLUME DECREASED [None]
  - DIABETES MELLITUS [None]
